FAERS Safety Report 20385183 (Version 1)
Quarter: 2022Q1

REPORT INFORMATION
  Report Type: Spontaneous
  Country: US (occurrence: US)
  Receive Date: 20220127
  Receipt Date: 20220127
  Transmission Date: 20220424
  Serious: No
  Sender: FDA-Public Use
  Company Number: US-ALLERGAN-2129359US

PATIENT
  Age: 45 Year
  Sex: Female

DRUGS (4)
  1. BOTOX COSMETIC [Suspect]
     Active Substance: ONABOTULINUMTOXINA
     Indication: Skin wrinkling
     Dosage: 12 UNITS, SINGLE
     Dates: start: 20210624, end: 20210624
  2. BOTOX COSMETIC [Suspect]
     Active Substance: ONABOTULINUMTOXINA
     Indication: Skin wrinkling
     Dosage: 20 UNITS, SINGLE
     Dates: start: 20210624, end: 20210624
  3. BOTOX COSMETIC [Suspect]
     Active Substance: ONABOTULINUMTOXINA
     Indication: Skin wrinkling
     Dosage: 12 UNITS, SINGLE
     Dates: start: 20210624, end: 20210624
  4. SkinMedica Dermal Repair Cream [Concomitant]
     Dosage: UNK
     Dates: start: 20210624, end: 20210626

REACTIONS (2)
  - Swelling face [Not Recovered/Not Resolved]
  - Face oedema [Not Recovered/Not Resolved]

NARRATIVE: CASE EVENT DATE: 20210625
